FAERS Safety Report 9226518 (Version 1)
Quarter: 2013Q2

REPORT INFORMATION
  Report Type: Spontaneous
  Country: US (occurrence: US)
  Receive Date: 20130412
  Receipt Date: 20130412
  Transmission Date: 20140414
  Serious: No
  Sender: FDA-Public Use
  Company Number: US-009507513-1304USA003634

PATIENT
  Age: 86 Year
  Sex: Female

DRUGS (1)
  1. NASONEX [Suspect]
     Indication: MIDDLE EAR EFFUSION
     Dosage: TWO SPRAYS IN EACH NOSTRIL ONCE A DAY
     Route: 045

REACTIONS (3)
  - Eye disorder [Not Recovered/Not Resolved]
  - Drug ineffective [Not Recovered/Not Resolved]
  - Throat irritation [Unknown]
